FAERS Safety Report 14017080 (Version 2)
Quarter: 2019Q3

REPORT INFORMATION
  Report Type: Spontaneous
  Country: JP (occurrence: JP)
  Receive Date: 20170927
  Receipt Date: 20190922
  Transmission Date: 20191004
  Serious: Yes (Other)
  Sender: FDA-Public Use
  Company Number: JP-CELGENEUS-JPN-2016035608

PATIENT

DRUGS (4)
  1. VIDAZA [Suspect]
     Active Substance: AZACITIDINE
     Indication: CHRONIC MYELOMONOCYTIC LEUKAEMIA
  2. VIDAZA [Suspect]
     Active Substance: AZACITIDINE
     Indication: MYELODYSPLASTIC SYNDROME
     Dosage: 75 MILLIGRAM/SQ. METER
     Route: 058
  3. PANOBINOSTAT [Suspect]
     Active Substance: PANOBINOSTAT
     Indication: MYELODYSPLASTIC SYNDROME
     Dosage: 20-30 MG
     Route: 065
  4. PANOBINOSTAT [Suspect]
     Active Substance: PANOBINOSTAT
     Indication: CHRONIC MYELOMONOCYTIC LEUKAEMIA

REACTIONS (21)
  - Lymphopenia [Unknown]
  - Injection site reaction [Unknown]
  - Malaise [Unknown]
  - Pneumonia [Unknown]
  - Diarrhoea [Unknown]
  - Nausea [Unknown]
  - Pyrexia [Unknown]
  - Constipation [Unknown]
  - Blood creatinine increased [Unknown]
  - Rash [Unknown]
  - Supraventricular tachycardia [Unknown]
  - Febrile neutropenia [Unknown]
  - Disease progression [Unknown]
  - Gingival bleeding [Unknown]
  - Thrombocytopenia [Unknown]
  - Neutropenia [Unknown]
  - Anaemia [Unknown]
  - Leukopenia [Unknown]
  - Lung infection [Unknown]
  - Decreased appetite [Unknown]
  - Vomiting [Unknown]
